FAERS Safety Report 9664022 (Version 1)
Quarter: 2013Q4

REPORT INFORMATION
  Report Type: Spontaneous
  Country: US (occurrence: None)
  Receive Date: 20131030
  Receipt Date: 20131030
  Transmission Date: 20140711
  Serious: Yes (Other)
  Sender: FDA-Public Use
  Company Number: None

PATIENT
  Age: 52 Year
  Sex: Female
  Weight: 61.24 kg

DRUGS (1)
  1. LISINOPRIL [Suspect]
     Indication: MIGRAINE PROPHYLAXIS
     Dosage: TAKEN BY MOUTH
     Dates: start: 20130830, end: 20130908

REACTIONS (2)
  - Haemorrhoids [None]
  - Swelling [None]
